FAERS Safety Report 6618389-1 (Version None)
Quarter: 2010Q1

REPORT INFORMATION
  Report Type: 
  Country: None (occurrence: None)
  Receive Date: 20100308
  Receipt Date: 20100301
  Transmission Date: 20100710
  Serious: Yes (Other)
  Sender: FDA-Public Use
  Company Number: B0605457A

PATIENT
  Sex: Female

DRUGS (6)
  1. PAXIL [Suspect]
     Indication: DEPRESSION
     Dosage: 40MG PER DAY
     Route: 048
     Dates: start: 20070324, end: 20070920
  2. NAUZELIN [Concomitant]
     Indication: PROPHYLAXIS OF NAUSEA AND VOMITING
     Dosage: 10MG PER DAY
     Route: 048
     Dates: start: 20070324, end: 20090412
  3. DEPAS [Concomitant]
     Indication: ANXIOLYTIC THERAPY
     Dosage: 1MG PER DAY
     Route: 048
     Dates: start: 20070324, end: 20070920
  4. CHINESE MEDICINE [Concomitant]
     Dosage: 7.5G PER DAY
     Route: 048
     Dates: start: 20070608, end: 20070920
  5. DEPAKENE [Concomitant]
     Indication: CONSTRICTED AFFECT
     Route: 048
     Dates: start: 20070329
  6. CONSTAN [Concomitant]
     Indication: ANXIOLYTIC THERAPY
     Route: 048
     Dates: start: 20070817

REACTIONS (1)
  - LIVER DISORDER [None]
